FAERS Safety Report 4263678-1 (Version None)
Quarter: 2004Q1

REPORT INFORMATION
  Report Type: 
  Country: None (occurrence: None)
  Receive Date: 20040102
  Receipt Date: 20031222
  Transmission Date: 20041129
  Serious: Yes (Disabling)
  Sender: FDA-Public Use
  Company Number: IE-JNJFOC-20031006430

PATIENT
  Age: 15 Year
  Sex: Female

DRUGS (2)
  1. RISPERDAL [Suspect]
     Indication: AGGRESSION
     Dosage: 0.5 MG, 1 IN 1 DAY, ORAL
     Route: 048
     Dates: start: 20031006, end: 20031020
  2. SERTRALINE HCL [Concomitant]

REACTIONS (4)
  - GALACTORRHOEA [None]
  - METRORRHAGIA [None]
  - URINARY INCONTINENCE [None]
  - VOMITING [None]
